FAERS Safety Report 11377429 (Version 1)
Quarter: 2015Q3

REPORT INFORMATION
  Report Type: Spontaneous
  Country: US (occurrence: US)
  Receive Date: 20150811
  Receipt Date: 20150811
  Transmission Date: 20151125
  Serious: No
  Sender: FDA-Public Use
  Company Number: US-ELI_LILLY_AND_COMPANY-US200812005104

PATIENT
  Sex: Female

DRUGS (4)
  1. PLAVIX [Concomitant]
     Active Substance: CLOPIDOGREL BISULFATE
  2. HUMULIN R [Suspect]
     Active Substance: INSULIN HUMAN
     Dosage: UNK, UNK
     Dates: start: 2000
  3. HYDROCODONE [Concomitant]
     Active Substance: HYDROCODONE
  4. HUMULIN N [Suspect]
     Active Substance: INSULIN HUMAN
     Dates: start: 2000

REACTIONS (1)
  - Coronary artery occlusion [Not Recovered/Not Resolved]
